FAERS Safety Report 18610911 (Version 1)
Quarter: 2020Q4

REPORT INFORMATION
  Report Type: Spontaneous
  Country: JP (occurrence: JP)
  Receive Date: 20201214
  Receipt Date: 20201214
  Transmission Date: 20210114
  Serious: Yes (Hospitalization, Other)
  Sender: FDA-Public Use
  Company Number: JP-JNJFOC-20201215472

PATIENT
  Age: 89 Year
  Sex: Female

DRUGS (2)
  1. RIVAROXABAN [Suspect]
     Active Substance: RIVAROXABAN
     Dosage: UNK
     Route: 048
     Dates: start: 20201002
  2. RIVAROXABAN [Suspect]
     Active Substance: RIVAROXABAN
     Indication: PRODUCT USED FOR UNKNOWN INDICATION
     Dosage: 10 MG, QD
     Route: 048
     Dates: start: 201610, end: 202008

REACTIONS (9)
  - Occult blood positive [Unknown]
  - Cerebral infarction [Unknown]
  - Gastrointestinal haemorrhage [Unknown]
  - Altered state of consciousness [Unknown]
  - Altered state of consciousness [Unknown]
  - Haematuria [Unknown]
  - Hemiplegia [Unknown]
  - Ureterolithiasis [Unknown]
  - Iron deficiency anaemia [Unknown]

NARRATIVE: CASE EVENT DATE: 201802
